FAERS Safety Report 7530984-4 (Version None)
Quarter: 2011Q2

REPORT INFORMATION
  Report Type: 
  Country: None (occurrence: None)
  Receive Date: 20110608
  Receipt Date: 20110120
  Transmission Date: 20111010
  Serious: Yes (Hospitalization, Other)
  Sender: FDA-Public Use
  Company Number: US-BAYER-201039713NA

PATIENT
  Age: 25 Year
  Sex: Female
  Weight: 77.098 kg

DRUGS (10)
  1. WELLBUTRIN [Concomitant]
     Indication: DEPRESSION
     Dosage: 300 MG, QD
     Route: 048
  2. ACETAMINOPHEN [Concomitant]
  3. ADVIL LIQUI-GELS [Concomitant]
  4. TUMS [CALCIUM CARBONATE] [Concomitant]
  5. LEXAPRO [Concomitant]
  6. YASMIN [Suspect]
     Dosage: UNK
     Dates: start: 20080116
  7. DROSPIRENONE AND ETHINYL ESTRADIOL [Suspect]
     Dosage: UNK
     Dates: start: 20090312, end: 20100131
  8. SKELAXIN [Concomitant]
  9. DROSPIRENONE AND ETHINYL ESTRADIOL [Suspect]
     Dosage: UNK
     Dates: start: 20080706, end: 20081221
  10. PREVACID [Concomitant]

REACTIONS (3)
  - GASTROINTESTINAL PAIN [None]
  - GALLBLADDER NON-FUNCTIONING [None]
  - CHOLECYSTITIS CHRONIC [None]
